FAERS Safety Report 7406158-4 (Version None)
Quarter: 2011Q2

REPORT INFORMATION
  Report Type: 
  Country: None (occurrence: None)
  Receive Date: 20110411
  Receipt Date: 20110401
  Transmission Date: 20111010
  Serious: Yes (Hospitalization)
  Sender: FDA-Public Use
  Company Number: US-ABBOTT-11P-163-0715977-01

PATIENT
  Sex: Female

DRUGS (5)
  1. HUMIRA [Suspect]
     Indication: CROHN'S DISEASE
     Route: 058
     Dates: start: 20081002, end: 20081002
  2. HUMIRA [Suspect]
     Dosage: WEEK 2
     Route: 058
  3. CIMZIA [Concomitant]
     Indication: CROHN'S DISEASE
  4. HUMIRA [Suspect]
     Route: 058
     Dates: end: 20090731
  5. IMMUNOSUPPRESSANTS [Concomitant]
     Indication: PRODUCT USED FOR UNKNOWN INDICATION

REACTIONS (1)
  - FEMALE GENITAL TRACT FISTULA [None]
